FAERS Safety Report 9837235 (Version 1)
Quarter: 2014Q1

REPORT INFORMATION
  Report Type: Spontaneous
  Country: US (occurrence: None)
  Receive Date: 20140117
  Receipt Date: 20140117
  Transmission Date: 20141002
  Serious: No
  Sender: FDA-Public Use
  Company Number: None

PATIENT
  Age: 9 Year
  Sex: Male
  Weight: 26.31 kg

DRUGS (1)
  1. VYVANCE [Suspect]
     Indication: ATTENTION DEFICIT/HYPERACTIVITY DISORDER
     Dates: start: 20130916, end: 20131220

REACTIONS (5)
  - Tic [None]
  - Nightmare [None]
  - Impulsive behaviour [None]
  - Initial insomnia [None]
  - Middle insomnia [None]
